FAERS Safety Report 4945283-4 (Version None)
Quarter: 2006Q1

REPORT INFORMATION
  Report Type: 
  Country: None (occurrence: None)
  Receive Date: 20060315
  Receipt Date: 20060315
  Transmission Date: 20060701
  Serious: Yes (Other)
  Sender: FDA-Public Use
  Company Number: None

PATIENT
  Age: 51 Year
  Sex: Female
  Weight: 58.9676 kg

DRUGS (1)
  1. CIPROFLOXACIN [Suspect]
     Indication: PAROTITIS
     Dosage: ORAL DOSE UNKNOWN
     Route: 048
     Dates: start: 20060203

REACTIONS (1)
  - PANCREATITIS [None]
